FAERS Safety Report 9003919 (Version 1)
Quarter: 2013Q1

REPORT INFORMATION
  Report Type: Spontaneous
  Country: US (occurrence: US)
  Receive Date: 20130108
  Receipt Date: 20130108
  Transmission Date: 20140127
  Serious: Yes (Hospitalization)
  Sender: FDA-Public Use
  Company Number: US-TEVA-379358USA

PATIENT
  Age: 61 Year
  Sex: Female

DRUGS (1)
  1. PROAIR HFA [Suspect]
     Indication: ASTHMA

REACTIONS (1)
  - Chronic obstructive pulmonary disease [Recovered/Resolved]
